FAERS Safety Report 9438422 (Version 1)
Quarter: 2013Q3

REPORT INFORMATION
  Report Type: Spontaneous
  Country: US (occurrence: US)
  Receive Date: 20130802
  Receipt Date: 20130802
  Transmission Date: 20140515
  Serious: No
  Sender: FDA-Public Use
  Company Number: US-BRISTOL-MYERS SQUIBB COMPANY-17268111

PATIENT
  Age: 23 Year
  Sex: Male
  Weight: 72.56 kg

DRUGS (10)
  1. ABILIFY [Suspect]
     Indication: MAJOR DEPRESSION
  2. COUMADIN [Suspect]
     Indication: HEART VALVE REPLACEMENT
     Dosage: 1DF: 3MG AND 4MG EXP DATE: : 20JUL2014 : 20AUG2014
  3. CYMBALTA [Suspect]
     Indication: PAIN
  4. CYMBALTA [Suspect]
     Indication: MAJOR DEPRESSION
  5. TESTOSTERONE [Suspect]
  6. OXYCODONE [Suspect]
     Indication: PAIN
  7. FENTANYL PATCH [Suspect]
     Indication: PAIN
  8. XANAX [Suspect]
  9. FLURAZEPAM [Suspect]
     Dosage: AT BED TIME
  10. BABY ASPIRIN [Suspect]
     Indication: HEART VALVE REPLACEMENT

REACTIONS (7)
  - Somnolence [Unknown]
  - Akathisia [Unknown]
  - Tardive dyskinesia [Unknown]
  - International normalised ratio fluctuation [Unknown]
  - Gastrooesophageal reflux disease [Unknown]
  - Dysuria [Unknown]
  - Product quality issue [Unknown]
